FAERS Safety Report 25210483 (Version 1)
Quarter: 2025Q2

REPORT INFORMATION
  Report Type: Report from Study
  Country: US (occurrence: US)
  Receive Date: 20250417
  Receipt Date: 20250417
  Transmission Date: 20250717
  Serious: Yes (Other)
  Sender: PFIZER
  Company Number: US-PFIZER INC-202500076300

PATIENT
  Age: 52 Year
  Sex: Female

DRUGS (1)
  1. LORBRENA [Suspect]
     Active Substance: LORLATINIB
     Dosage: ONE 100MG TABLET ORALLY DAILY
     Route: 048
     Dates: start: 20250207, end: 20250401

REACTIONS (6)
  - Second primary malignancy [Recovering/Resolving]
  - Neoplasm malignant [Recovering/Resolving]
  - Nasopharyngitis [Recovering/Resolving]
  - Vertigo [Recovering/Resolving]
  - Diarrhoea [Recovering/Resolving]
  - Peripheral swelling [Recovering/Resolving]

NARRATIVE: CASE EVENT DATE: 20250301
